FAERS Safety Report 25990997 (Version 1)
Quarter: 2025Q4

REPORT INFORMATION
  Report Type: Spontaneous
  Country: US (occurrence: US)
  Receive Date: 20251103
  Receipt Date: 20251103
  Transmission Date: 20260117
  Serious: No
  Sender: BOEHRINGER INGELHEIM
  Company Number: US-Komodo Health-a23aa00000Bm1I1AAJ

PATIENT
  Age: 54 Year
  Sex: Female

DRUGS (1)
  1. SPIRIVA [Suspect]
     Active Substance: TIOTROPIUM BROMIDE MONOHYDRATE
     Indication: Product used for unknown indication
     Dosage: 2 PUFFS DAILY/1 CAPSULE

REACTIONS (2)
  - Palpitations [Unknown]
  - Extra dose administered [Unknown]

NARRATIVE: CASE EVENT DATE: 20251030
